FAERS Safety Report 6677000-4 (Version None)
Quarter: 2010Q2

REPORT INFORMATION
  Report Type: 
  Country: None (occurrence: None)
  Receive Date: 20100412
  Receipt Date: 20100329
  Transmission Date: 20101027
  Serious: Yes (Death, Other)
  Sender: FDA-Public Use
  Company Number: MX-ELI_LILLY_AND_COMPANY-MX201003006214

PATIENT
  Age: 96 Year
  Sex: Female

DRUGS (3)
  1. FORTEO [Suspect]
     Indication: BONE DISORDER
     Dosage: 20 UG, DAILY (1/D)
     Route: 058
     Dates: start: 20091101
  2. PLAVIX [Concomitant]
     Indication: ARTERIOSCLEROSIS
     Dosage: UNK, UNKNOWN
     Route: 065
  3. ANGIOTROFIN [Concomitant]
     Indication: ARTERIOSCLEROSIS
     Dosage: UNK, UNKNOWN
     Route: 065

REACTIONS (2)
  - PNEUMONIA [None]
  - PULMONARY OEDEMA [None]
